FAERS Safety Report 12530990 (Version 8)
Quarter: 2017Q1

REPORT INFORMATION
  Report Type: Report from Study
  Country: US (occurrence: US)
  Receive Date: 20160706
  Receipt Date: 20170206
  Transmission Date: 20170428
  Serious: Yes (Hospitalization, Other)
  Sender: FDA-Public Use
  Company Number: US-BAYER-2016-116009

PATIENT
  Age: 66 Year
  Sex: Male
  Weight: 66.76 kg

DRUGS (17)
  1. XGEVA [Concomitant]
     Active Substance: DENOSUMAB
     Indication: BONE DISORDER
     Dosage: 120 MG, UNK
     Route: 058
     Dates: start: 20151006
  2. LISINOPRIL. [Concomitant]
     Active Substance: LISINOPRIL
     Indication: HYPERTENSION
     Dosage: DAILY DOSE 5 MG
     Route: 048
     Dates: start: 200908
  3. RADIUM-223 DICHLORIDE [Suspect]
     Active Substance: RADIUM RA-223 DICHLORIDE
     Indication: METASTASES TO BONE
     Dosage: UNK
     Dates: start: 20140911, end: 20140911
  4. RADIUM-223 DICHLORIDE [Suspect]
     Active Substance: RADIUM RA-223 DICHLORIDE
     Indication: PROSTATE CANCER STAGE IV
     Dosage: UNK
     Dates: start: 20141007, end: 20141007
  5. ADDITIONAL STUDY MEDICATION [Suspect]
     Active Substance: UNSPECIFIED INGREDIENT
     Indication: PROSTATE CANCER STAGE IV
     Dosage: DAILY DOSE 160 MG
     Route: 048
     Dates: start: 20140812, end: 20150711
  6. ELIGARD [Concomitant]
     Active Substance: LEUPROLIDE ACETATE
     Indication: PROSTATE CANCER
     Dosage: 45 MG, Q6MONTH
     Route: 058
     Dates: start: 20131017
  7. GLIMEPIRIDE. [Concomitant]
     Active Substance: GLIMEPIRIDE
     Indication: DIABETES MELLITUS
     Dosage: DAILY DOSE 6 MG
     Route: 048
     Dates: start: 20160526
  8. DEXAMETHASONE. [Concomitant]
     Active Substance: DEXAMETHASONE
     Indication: ADRENAL INSUFFICIENCY
     Dosage: 0.5 MG, QD
     Route: 048
     Dates: start: 201602
  9. HUMULIN NOS [Concomitant]
     Active Substance: INSULIN HUMAN
     Indication: DIABETES MELLITUS
     Dosage: 70 UNIT/ML
     Route: 058
     Dates: start: 20150312
  10. ADDITIONAL STUDY MEDICATION [Suspect]
     Active Substance: UNSPECIFIED INGREDIENT
     Indication: METASTASES TO BONE
     Dosage: UNK
  11. METFORMIN [Concomitant]
     Active Substance: METFORMIN HYDROCHLORIDE
     Indication: DIABETES MELLITUS
     Dosage: DAILY DOSE 1000 MG
     Route: 048
     Dates: start: 20150624
  12. RADIUM-223 DICHLORIDE [Suspect]
     Active Substance: RADIUM RA-223 DICHLORIDE
     Indication: PROSTATE CANCER STAGE IV
     Dosage: UNK
     Dates: start: 20141111, end: 20141111
  13. DOCETAXEL. [Concomitant]
     Active Substance: DOCETAXEL
     Dosage: 50 MG/M2, Q2WK
     Dates: start: 201601, end: 201603
  14. RADIUM-223 DICHLORIDE [Suspect]
     Active Substance: RADIUM RA-223 DICHLORIDE
     Indication: PROSTATE CANCER STAGE IV
     Dosage: UNK
     Dates: start: 20141202, end: 20141202
  15. RADIUM-223 DICHLORIDE [Suspect]
     Active Substance: RADIUM RA-223 DICHLORIDE
     Indication: PROSTATE CANCER STAGE IV
     Dosage: UNK
     Dates: start: 20141230, end: 20141230
  16. RADIUM-223 DICHLORIDE [Suspect]
     Active Substance: RADIUM RA-223 DICHLORIDE
     Indication: PROSTATE CANCER STAGE IV
     Dosage: 50 KBQ/KG
     Route: 042
     Dates: start: 20140812, end: 20140812
  17. SIMVASTIN [Concomitant]
     Active Substance: SIMVASTATIN
     Indication: BLOOD CHOLESTEROL INCREASED
     Dosage: UNK
     Route: 048
     Dates: start: 200908

REACTIONS (1)
  - Acute promyelocytic leukaemia [Not Recovered/Not Resolved]

NARRATIVE: CASE EVENT DATE: 20160608
